FAERS Safety Report 14024657 (Version 2)
Quarter: 2017Q4

REPORT INFORMATION
  Report Type: Spontaneous
  Country: US (occurrence: US)
  Receive Date: 20170929
  Receipt Date: 20171013
  Transmission Date: 20180321
  Serious: Yes (Hospitalization, Other)
  Sender: FDA-Public Use
  Company Number: US-009507513-1709USA012037

PATIENT
  Age: 55 Year
  Sex: Male

DRUGS (4)
  1. TEMODAR [Suspect]
     Active Substance: TEMOZOLOMIDE
     Indication: ANAPLASTIC OLIGODENDROGLIOMA
     Dosage: COMPLETE 12 CYCLES
     Dates: start: 201112, end: 201212
  2. DECADRON [Concomitant]
     Active Substance: DEXAMETHASONE
     Dosage: UNK
     Dates: start: 2007
  3. TEMODAR [Suspect]
     Active Substance: TEMOZOLOMIDE
     Dosage: 150 MG/M2, C1
     Dates: start: 20150318
  4. TEMODAR [Suspect]
     Active Substance: TEMOZOLOMIDE
     Dosage: 200 MG/M2, C2, COMPLETED 12 CYCLES ON 17-MAR-2016.
     Dates: end: 20160317

REACTIONS (8)
  - Metastases to meninges [Unknown]
  - Visual field defect [Recovering/Resolving]
  - Thrombocytopenia [Unknown]
  - Depression [Unknown]
  - Cognitive disorder [Unknown]
  - Anaplastic oligodendroglioma [Unknown]
  - Papilloedema [Unknown]
  - Blood pressure increased [Unknown]

NARRATIVE: CASE EVENT DATE: 20141119
